FAERS Safety Report 24558237 (Version 5)
Quarter: 2025Q1

REPORT INFORMATION
  Report Type: Spontaneous
  Country: JP (occurrence: JP)
  Receive Date: 20241028
  Receipt Date: 20250220
  Transmission Date: 20250408
  Serious: Yes (Hospitalization, Other)
  Sender: GLAXOSMITHKLINE
  Company Number: None

PATIENT

DRUGS (4)
  1. MOMELOTINIB [Suspect]
     Active Substance: MOMELOTINIB
     Indication: Myelofibrosis
     Dosage: 200 MG, QD
     Dates: start: 20241018
  2. PREDNISOLONE [Concomitant]
     Active Substance: PREDNISOLONE
     Indication: Pyoderma gangrenosum
     Dosage: 30 MG, 1D
     Dates: start: 202407
  3. RUXOLITINIB [Concomitant]
     Active Substance: RUXOLITINIB
     Dosage: 5 MG, 1D
     Dates: start: 20240814
  4. RUXOLITINIB [Concomitant]
     Active Substance: RUXOLITINIB
     Dosage: 5 MG, BID

REACTIONS (2)
  - Septic shock [Recovered/Resolved]
  - Pneumonia [Unknown]

NARRATIVE: CASE EVENT DATE: 20241022
